FAERS Safety Report 5506382-1 (Version None)
Quarter: 2007Q4

REPORT INFORMATION
  Report Type: 
  Country: None (occurrence: None)
  Receive Date: 20071101
  Receipt Date: 20071101
  Transmission Date: 20080405
  Serious: Yes (Other)
  Sender: FDA-Public Use
  Company Number: None

PATIENT
  Age: 25 Year
  Sex: Female

DRUGS (1)
  1. PROVENTIL-HFA [Suspect]
     Indication: ASTHMA
     Dosage: INHAL
     Route: 055
     Dates: start: 20070301, end: 20070630

REACTIONS (1)
  - DRUG EFFECT DECREASED [None]
